FAERS Safety Report 4343044-0 (Version None)
Quarter: 2004Q2

REPORT INFORMATION
  Report Type: 
  Country: None (occurrence: None)
  Receive Date: 20040416
  Receipt Date: 20040405
  Transmission Date: 20050107
  Serious: Yes (Hospitalization)
  Sender: FDA-Public Use
  Company Number: US-JNJFOC-20040400890

PATIENT
  Age: 67 Year
  Sex: Female
  Weight: 55.7924 kg

DRUGS (11)
  1. INFLIXIMAB (INFLIXIMAB, RECOMBINANT) LYOPHILIZED POWDER [Suspect]
     Indication: RHEUMATOID ARTHRITIS
     Dosage: INTRAVENOUS
     Route: 042
     Dates: start: 20010405, end: 20020121
  2. PREDNISONE [Concomitant]
  3. AVAPRO [Concomitant]
  4. POTASSIUM (POTASSIUM) [Concomitant]
  5. TRIAM/HCTZ (TRIAMCINOLONE ACETONIDE) [Concomitant]
  6. BEXTRA [Concomitant]
  7. MULTIVITAMIN (MULTIVITAMNS) [Concomitant]
  8. VITAMIN E [Concomitant]
  9. CALCIUM (CALCIUM) [Concomitant]
  10. PEPCID [Concomitant]
  11. FOLIC ACID [Concomitant]

REACTIONS (1)
  - CHOLECYSTECTOMY [None]
